FAERS Safety Report 4587496-X (Version None)
Quarter: 2005Q1

REPORT INFORMATION
  Report Type: 
  Country: None (occurrence: None)
  Receive Date: 20050215
  Receipt Date: 20050202
  Transmission Date: 20050727
  Serious: Yes (Death, Hospitalization)
  Sender: FDA-Public Use
  Company Number: 2005025042

PATIENT
  Sex: Female

DRUGS (2)
  1. VIAGRA [Suspect]
     Indication: PULMONARY HYPERTENSION
     Dosage: 100 MG (25 MG, 4 IN 1 D), ORAL
     Route: 048
     Dates: start: 20011201
  2. WARFARIN SODIUM [Concomitant]

REACTIONS (5)
  - COUGH [None]
  - ERYTHEMA [None]
  - FATIGUE [None]
  - PULMONARY ARTERY DILATATION [None]
  - PULMONARY HYPERTENSION [None]
